FAERS Safety Report 4596019-0 (Version None)
Quarter: 2005Q1

REPORT INFORMATION
  Report Type: 
  Country: None (occurrence: None)
  Receive Date: 20050225
  Receipt Date: 20050215
  Transmission Date: 20050727
  Serious: Yes (Other)
  Sender: FDA-Public Use
  Company Number: HQWYE364116FEB05

PATIENT

DRUGS (2)
  1. MINOCIN [Suspect]
     Indication: ACNE
     Dosage: 100 MG 1 X PER 1 DAY, ORAL
     Route: 048
  2. EPILIM (VALPROATE SODIUM) [Concomitant]

REACTIONS (2)
  - CONDITION AGGRAVATED [None]
  - EPILEPSY [None]
